FAERS Safety Report 9409565 (Version 1)
Quarter: 2013Q3

REPORT INFORMATION
  Report Type: Spontaneous
  Country: US (occurrence: US)
  Receive Date: 20130719
  Receipt Date: 20130719
  Transmission Date: 20140515
  Serious: No
  Sender: FDA-Public Use
  Company Number: US-B.I. PHARMACEUTICALS,INC./RIDGEFIELD-2013-BI-20378BP

PATIENT
  Age: 75 Year
  Sex: Female

DRUGS (2)
  1. MELOXICAM [Suspect]
  2. HYDROCO/APAP [Suspect]

REACTIONS (1)
  - Abdominal discomfort [Unknown]
